FAERS Safety Report 7360240-9 (Version None)
Quarter: 2011Q1

REPORT INFORMATION
  Report Type: 
  Country: None (occurrence: None)
  Receive Date: 20110307
  Receipt Date: 20110301
  Transmission Date: 20110831
  Serious: Yes (Hospitalization)
  Sender: FDA-Public Use
  Company Number: PIR#1102033A

PATIENT
  Age: 52 Year
  Sex: Male
  Weight: 96.6162 kg

DRUGS (1)
  1. HEPARIN SODIUM [Suspect]
     Dosage: 25,000 UNITS IN 250ML

REACTIONS (2)
  - ACTIVATED PARTIAL THROMBOPLASTIN TIME SHORTENED [None]
  - DRUG INEFFECTIVE [None]
